FAERS Safety Report 16812834 (Version 1)
Quarter: 2019Q3

REPORT INFORMATION
  Report Type: Spontaneous
  Country: IT (occurrence: IT)
  Receive Date: 20190916
  Receipt Date: 20190916
  Transmission Date: 20191005
  Serious: Yes (Hospitalization, Other)
  Sender: FDA-Public Use
  Company Number: IT-JAZZ-2019-IT-009875

PATIENT
  Age: 2 Year
  Sex: Male
  Weight: 14.97 kg

DRUGS (1)
  1. ASPARAGINASE [Suspect]
     Active Substance: ASPARAGINASE
     Indication: ACUTE LEUKAEMIA
     Dosage: 1500 DF AS NECESSARY
     Route: 042
     Dates: start: 20180622, end: 20190103

REACTIONS (1)
  - Urticaria [Recovered/Resolved]

NARRATIVE: CASE EVENT DATE: 20190103
